FAERS Safety Report 7036938-9 (Version None)
Quarter: 2010Q4

REPORT INFORMATION
  Report Type: 
  Country: None (occurrence: None)
  Receive Date: 20101011
  Receipt Date: 20101001
  Transmission Date: 20110411
  Serious: Yes (Hospitalization)
  Sender: FDA-Public Use
  Company Number: JP-JNJFOC-20101002306

PATIENT
  Age: 92 Year
  Sex: Female

DRUGS (2)
  1. CRAVIT [Suspect]
     Indication: INFECTION
     Route: 048
     Dates: start: 20100924, end: 20100926
  2. LOXONIN [Concomitant]
     Route: 065

REACTIONS (2)
  - CONVULSION [None]
  - DEPRESSED LEVEL OF CONSCIOUSNESS [None]
